FAERS Safety Report 9726017 (Version 4)
Quarter: 2014Q2

REPORT INFORMATION
  Report Type: Spontaneous
  Country: US (occurrence: US)
  Receive Date: 20131203
  Receipt Date: 20140509
  Transmission Date: 20141212
  Serious: Yes (Hospitalization)
  Sender: FDA-Public Use
  Company Number: US-BAYER-2013-143683

PATIENT
  Age: 23 Year
  Sex: Female
  Weight: 48 kg

DRUGS (2)
  1. MIRENA [Suspect]
     Indication: CONTRACEPTION
     Dosage: 20 MCG/24HR, CONT
     Route: 015
     Dates: start: 20091106, end: 20101206
  2. ORTHO TRI-CYCLEN [Concomitant]
     Dosage: UNK
     Dates: start: 2009

REACTIONS (9)
  - Uterine perforation [None]
  - Benign hydatidiform mole [Recovered/Resolved]
  - Pregnancy with contraceptive device [Recovered/Resolved]
  - Injury [None]
  - Pain [None]
  - Device dislocation [None]
  - Drug ineffective [None]
  - Emotional distress [None]
  - Depression [None]
